FAERS Safety Report 4323389-0 (Version None)
Quarter: 2004Q1

REPORT INFORMATION
  Report Type: 
  Country: None (occurrence: None)
  Receive Date: 20040325
  Receipt Date: 20040323
  Transmission Date: 20041129
  Serious: Yes (Hospitalization, Other)
  Sender: FDA-Public Use
  Company Number: US-GLAXOSMITHKLINE-A0504100A

PATIENT
  Age: 57 Year
  Sex: Female

DRUGS (1)
  1. PAXIL CR [Suspect]
     Dosage: 25MG PER DAY
     Route: 048

REACTIONS (4)
  - DEMENTIA [None]
  - FEELING ABNORMAL [None]
  - FEELING OF DESPAIR [None]
  - HOMICIDAL IDEATION [None]
